APPROVED DRUG PRODUCT: RILPIVIRINE HYDROCHLORIDE
Active Ingredient: RILPIVIRINE HYDROCHLORIDE
Strength: EQ 25MG BASE
Dosage Form/Route: TABLET;ORAL
Application: A218798 | Product #001 | TE Code: AB
Applicant: SOMERSET THERAPEUTICS LLC
Approved: Jan 29, 2026 | RLD: No | RS: No | Type: RX